FAERS Safety Report 6457165-X (Version None)
Quarter: 2009Q4

REPORT INFORMATION
  Report Type: 
  Country: None (occurrence: None)
  Receive Date: 20091120
  Receipt Date: 20091109
  Transmission Date: 20100525
  Serious: Yes (Other)
  Sender: FDA-Public Use
  Company Number: 233916K09USA

PATIENT
  Age: 46 Year
  Sex: Female
  Weight: 43 kg

DRUGS (3)
  1. REBIF [Suspect]
     Indication: MULTIPLE SCLEROSIS
     Dosage: 22 MCG, 3 IN 1 WEEKS, SUBCUTANEOUS
     Route: 058
     Dates: start: 20080530
  2. ZOLOFT [Concomitant]
  3. XANAX [Concomitant]

REACTIONS (1)
  - CONVULSION [None]
